FAERS Safety Report 23933370 (Version 1)
Quarter: 2024Q2

REPORT INFORMATION
  Report Type: Spontaneous
  Country: US (occurrence: US)
  Receive Date: 20240603
  Receipt Date: 20240603
  Transmission Date: 20240716
  Serious: No
  Sender: FDA-Public Use
  Company Number: US-AZURITY PHARMACEUTICALS, INC.-US-2024AZR000101

PATIENT
  Sex: Male

DRUGS (1)
  1. TESTOSTERONE CYPIONATE [Suspect]
     Active Substance: TESTOSTERONE CYPIONATE
     Indication: Hypogonadism
     Dosage: 1 ML, (EVERY 11 TO 14 DAYS)
     Route: 030
     Dates: start: 20231020

REACTIONS (3)
  - Product gel formation [Unknown]
  - Incorrect dose administered [Unknown]
  - Poor quality product administered [Unknown]
